FAERS Safety Report 8145055-6 (Version None)
Quarter: 2012Q1

REPORT INFORMATION
  Report Type: 
  Country: None (occurrence: None)
  Receive Date: 20120217
  Receipt Date: 20120214
  Transmission Date: 20120608
  Serious: Yes (Other)
  Sender: FDA-Public Use
  Company Number: US-PFIZER INC-2012040521

PATIENT
  Sex: Male

DRUGS (7)
  1. FLUOXETINE [Concomitant]
     Dosage: UNK
  2. BUSPAR [Concomitant]
     Dosage: UNK
  3. PEPCID [Concomitant]
     Dosage: UNK
  4. LIPITOR [Suspect]
     Dosage: 40 MG, 1X/DAY
  5. HUMALOG [Concomitant]
     Dosage: UNK
  6. TRAZODONE [Concomitant]
     Dosage: UNK
  7. LANTUS [Concomitant]
     Dosage: UNK

REACTIONS (2)
  - RESTLESS LEGS SYNDROME [None]
  - DIABETES MELLITUS [None]
